FAERS Safety Report 25948262 (Version 1)
Quarter: 2025Q4

REPORT INFORMATION
  Report Type: Spontaneous
  Country: US (occurrence: US)
  Receive Date: 20251022
  Receipt Date: 20251022
  Transmission Date: 20260118
  Serious: No
  Sender: SANOFI AVENTIS
  Company Number: US-SA-2025SA311560

PATIENT
  Age: 4 Year
  Sex: Male

DRUGS (2)
  1. ALPROLIX [Suspect]
     Active Substance: EFTRENONACOG ALFA
     Dosage: 2105 IU, QW
     Route: 042
  2. ALPROLIX [Suspect]
     Active Substance: EFTRENONACOG ALFA
     Dosage: 2105 IU, QW
     Route: 042

REACTIONS (3)
  - Cough [Not Recovered/Not Resolved]
  - Nasal discharge discolouration [Unknown]
  - Pyrexia [Unknown]

NARRATIVE: CASE EVENT DATE: 20251001
